FAERS Safety Report 8387164-2 (Version None)
Quarter: 2012Q2

REPORT INFORMATION
  Report Type: 
  Country: None (occurrence: None)
  Receive Date: 20120525
  Receipt Date: 20120524
  Transmission Date: 20120825
  Serious: Yes (Death, Life-Threatening, Hospitalization, Other)
  Sender: FDA-Public Use
  Company Number: NL-GENZYME-CLOF-1001731

PATIENT
  Sex: Male
  Weight: 82 kg

DRUGS (3)
  1. CLOFARABINE [Suspect]
     Indication: ACUTE MYELOID LEUKAEMIA
     Dosage: 20 MG; 2 DAYS (DAY 1-5)
     Route: 042
     Dates: start: 20110708, end: 20110710
  2. IDARUBICIN HCL [Suspect]
     Indication: ACUTE MYELOID LEUKAEMIA
     Dosage: 24 MG, UNK (DAY 1-3)
     Route: 042
     Dates: start: 20110708, end: 20110710
  3. CYTARABINE [Suspect]
     Indication: ACUTE MYELOID LEUKAEMIA
     Dosage: 410 MG, QD (DAY1-7)
     Route: 042
     Dates: start: 20110708, end: 20110714

REACTIONS (3)
  - CYTOKINE RELEASE SYNDROME [None]
  - ZYGOMYCOSIS [None]
  - CARDIAC FAILURE [None]
